FAERS Safety Report 11986580 (Version 1)
Quarter: 2016Q1

REPORT INFORMATION
  Report Type: Spontaneous
  Country: US (occurrence: None)
  Receive Date: 20160201
  Receipt Date: 20160201
  Transmission Date: 20160526
  Serious: No
  Sender: FDA-Public Use
  Company Number: None

PATIENT
  Age: 90 Year
  Sex: Male
  Weight: 75.3 kg

DRUGS (16)
  1. DIGOXIN. [Concomitant]
     Active Substance: DIGOXIN
  2. BETOPTIC [Concomitant]
     Active Substance: BETAXOLOL HYDROCHLORIDE
  3. VITAMIN E [Concomitant]
     Active Substance: .ALPHA.-TOCOPHEROL
  4. RANEXA [Suspect]
     Active Substance: RANOLAZINE
     Indication: CARDIAC FAILURE
     Route: 048
     Dates: start: 20160122, end: 20160124
  5. TOPROL XL [Concomitant]
     Active Substance: METOPROLOL SUCCINATE
  6. WARFARIN [Concomitant]
     Active Substance: WARFARIN
  7. LUMIGAN [Concomitant]
     Active Substance: BIMATOPROST
  8. TRUSOFT [Concomitant]
  9. VITAMIN C [Suspect]
     Active Substance: ASCORBIC ACID
  10. VITAMINS B12 [Concomitant]
  11. GLIMEPRIDE [Concomitant]
     Active Substance: GLIMEPIRIDE
  12. ISOSORBIDE. [Concomitant]
     Active Substance: ISOSORBIDE
  13. APHAGAN [Concomitant]
  14. RANEXA [Suspect]
     Active Substance: RANOLAZINE
     Indication: CARDIAC DISORDER
     Route: 048
     Dates: start: 20160122, end: 20160124
  15. LIPITOR [Concomitant]
     Active Substance: ATORVASTATIN CALCIUM
  16. ECOTRIN [Concomitant]
     Active Substance: ASPIRIN

REACTIONS (5)
  - Infrequent bowel movements [None]
  - Constipation [None]
  - Abdominal distension [None]
  - Decreased appetite [None]
  - Pain [None]

NARRATIVE: CASE EVENT DATE: 20160124
